FAERS Safety Report 8799436 (Version 1)
Quarter: 2012Q4

REPORT INFORMATION
  Report Type: Spontaneous
  Country: GB (occurrence: None)
  Receive Date: 20120914
  Receipt Date: 20120914
  Transmission Date: 20130627
  Serious: Yes (Other)
  Sender: FDA-Public Use
  Company Number: 2012AP002925

PATIENT
  Sex: Female

DRUGS (1)
  1. SERTRALINE (SERTRALINE) (SERTRALINE) [Suspect]

REACTIONS (1)
  - Breast cancer [None]
